FAERS Safety Report 20685352 (Version 4)
Quarter: 2022Q2

REPORT INFORMATION
  Report Type: Spontaneous
  Country: US (occurrence: US)
  Receive Date: 20220407
  Receipt Date: 20220520
  Transmission Date: 20220720
  Serious: No
  Sender: FDA-Public Use
  Company Number: US-NOVARTISTESTPH-NVSC2022US079352

PATIENT
  Sex: Female

DRUGS (1)
  1. XIIDRA [Suspect]
     Active Substance: LIFITEGRAST
     Indication: Product used for unknown indication
     Dosage: 1 DRP, BID ( (BOTH EYES 2XDAY)
     Route: 065
     Dates: start: 20220321, end: 20220325

REACTIONS (7)
  - Abnormal sensation in eye [Unknown]
  - Dry eye [Unknown]
  - Nasal dryness [Unknown]
  - Dry mouth [Unknown]
  - Eye irritation [Unknown]
  - Taste disorder [Unknown]
  - Product use complaint [Unknown]
